FAERS Safety Report 5386060-2 (Version None)
Quarter: 2007Q3

REPORT INFORMATION
  Report Type: 
  Country: None (occurrence: None)
  Receive Date: 20070710
  Receipt Date: 20070627
  Transmission Date: 20080115
  Serious: Yes (Hospitalization)
  Sender: FDA-Public Use
  Company Number: A-NJ2007-16305

PATIENT
  Age: 70 Year
  Sex: Female
  Weight: 60 kg

DRUGS (8)
  1. VENTAVIS [Suspect]
     Indication: PULMONARY HYPERTENSION
     Dosage: 5 UG, 6 X DAY, RESPIRATORY
     Route: 055
     Dates: start: 20070201
  2. TRACLEER [Concomitant]
  3. COUMADIN [Concomitant]
  4. LASIX [Concomitant]
  5. DIGOXIN [Concomitant]
  6. SILDENAFIL CITRATE [Concomitant]
  7. METHOTREXATE                      (METHOTREXATE) [Concomitant]
  8. NEXIUM [Concomitant]

REACTIONS (5)
  - MYOCARDIAL INFARCTION [None]
  - PNEUMONIA [None]
  - RENAL FAILURE ACUTE [None]
  - RENAL TUBULAR NECROSIS [None]
  - RESPIRATORY FAILURE [None]
